FAERS Safety Report 7681602-6 (Version None)
Quarter: 2011Q3

REPORT INFORMATION
  Report Type: 
  Country: None (occurrence: None)
  Receive Date: 20110812
  Receipt Date: 20110804
  Transmission Date: 20111222
  Serious: Yes (Other)
  Sender: FDA-Public Use
  Company Number: PHHY2011US40231

PATIENT
  Sex: Female
  Weight: 162 kg

DRUGS (5)
  1. GILENYA [Suspect]
     Indication: RELAPSING-REMITTING MULTIPLE SCLEROSIS
     Dosage: 0.5 MG, QD
     Route: 048
     Dates: start: 20110426, end: 20110705
  2. OPIOIDS [Concomitant]
  3. VICODIN [Concomitant]
     Indication: PAIN
     Dates: start: 20101202
  4. VITAMIN B-12 [Concomitant]
  5. NEXIUM [Concomitant]
     Indication: GASTROOESOPHAGEAL REFLUX DISEASE
     Dosage: 40 MG, QD
     Dates: start: 20110705

REACTIONS (10)
  - CHEST DISCOMFORT [None]
  - HEADACHE [None]
  - COUGH [None]
  - HEART RATE DECREASED [None]
  - BLOOD PRESSURE INCREASED [None]
  - BALANCE DISORDER [None]
  - VISUAL ACUITY REDUCED [None]
  - FATIGUE [None]
  - ASTHENIA [None]
  - VISUAL IMPAIRMENT [None]
